FAERS Safety Report 22004993 (Version 5)
Quarter: 2023Q2

REPORT INFORMATION
  Report Type: Report from Study
  Country: US (occurrence: US)
  Receive Date: 20230217
  Receipt Date: 20230601
  Transmission Date: 20230722
  Serious: No
  Sender: FDA-Public Use
  Company Number: US-002147023-NVSC2023US034165

PATIENT
  Sex: Male

DRUGS (2)
  1. COSENTYX [Suspect]
     Active Substance: SECUKINUMAB
     Indication: Psoriatic arthropathy
     Dosage: 150 MG
     Route: 058
  2. COSENTYX [Suspect]
     Active Substance: SECUKINUMAB
     Dosage: UNK UNK, QW
     Route: 058

REACTIONS (9)
  - Chills [Unknown]
  - Feeding disorder [Unknown]
  - Back pain [Unknown]
  - Stomatitis [Unknown]
  - Abdominal pain [Unknown]
  - Decreased appetite [Unknown]
  - Diarrhoea [Unknown]
  - Urticaria [Unknown]
  - Nasopharyngitis [Unknown]
